FAERS Safety Report 9515512 (Version 1)
Quarter: 2013Q3

REPORT INFORMATION
  Report Type: Report from Study
  Country: MX (occurrence: MX)
  Receive Date: 20130911
  Receipt Date: 20130911
  Transmission Date: 20140515
  Serious: Yes (Death, Hospitalization)
  Sender: FDA-Public Use
  Company Number: PHHY2013MX099105

PATIENT
  Age: 84 Year
  Sex: Male

DRUGS (1)
  1. EXELON PATCH [Suspect]
     Indication: SENILE DEMENTIA
     Dosage: 9.5 MG, DAILY
     Route: 062
     Dates: start: 2009

REACTIONS (4)
  - Pneumonia [Fatal]
  - Renal failure [Fatal]
  - Cardiac failure [Fatal]
  - Respiratory failure [Fatal]
